FAERS Safety Report 15603931 (Version 6)
Quarter: 2020Q3

REPORT INFORMATION
  Report Type: Spontaneous
  Country: US (occurrence: US)
  Receive Date: 20181109
  Receipt Date: 20200722
  Transmission Date: 20201102
  Serious: No
  Sender: FDA-Public Use
  Company Number: US-ACTELION-A-US2018-173087

PATIENT
  Age: 31 Year
  Sex: Female
  Weight: 70.3 kg

DRUGS (5)
  1. UPTRAVI [Suspect]
     Active Substance: SELEXIPAG
     Indication: PULMONARY ARTERIAL HYPERTENSION
     Dosage: 1400 MCG, BID
     Route: 048
  2. UPTRAVI [Suspect]
     Active Substance: SELEXIPAG
     Dosage: 1200 MCG
     Route: 048
  3. UPTRAVI [Suspect]
     Active Substance: SELEXIPAG
     Dosage: UNK
     Route: 048
     Dates: start: 20171219
  4. PREDNISONE. [Concomitant]
     Active Substance: PREDNISONE
  5. UPTRAVI [Suspect]
     Active Substance: SELEXIPAG
     Dosage: 200 MCG, BID
     Route: 048
     Dates: start: 20171219

REACTIONS (14)
  - Nausea [Unknown]
  - Sinusitis [Unknown]
  - Cholecystitis [Unknown]
  - Pulmonary arterial hypertension [Unknown]
  - Abdominal pain upper [Unknown]
  - Sjogren^s syndrome [Unknown]
  - Walking distance test abnormal [Unknown]
  - Condition aggravated [Unknown]
  - Palpitations [Unknown]
  - Lung opacity [Unknown]
  - Dyspnoea [Unknown]
  - Arthralgia [Not Recovered/Not Resolved]
  - Headache [Unknown]
  - Loss of personal independence in daily activities [Unknown]

NARRATIVE: CASE EVENT DATE: 201712
